FAERS Safety Report 8255903-7 (Version None)
Quarter: 2012Q2

REPORT INFORMATION
  Report Type: 
  Country: None (occurrence: None)
  Receive Date: 20120403
  Receipt Date: 20120319
  Transmission Date: 20120825
  Serious: Yes (Death, Hospitalization)
  Sender: FDA-Public Use
  Company Number: JP-ROCHE-1048157

PATIENT
  Sex: Female
  Weight: 42 kg

DRUGS (9)
  1. MIRCERA [Suspect]
     Route: 042
     Dates: start: 20111007, end: 20111007
  2. EPINASTINE HYDROCHLORIDE [Concomitant]
     Indication: PRURITUS
     Route: 048
     Dates: start: 20081107, end: 20111127
  3. MIRCERA [Suspect]
     Indication: NEPHROGENIC ANAEMIA
     Route: 042
     Dates: start: 20110805, end: 20110805
  4. MIRCERA [Suspect]
     Route: 042
     Dates: start: 20111111, end: 20111111
  5. MIRCERA [Suspect]
     Route: 042
     Dates: start: 20110902, end: 20110902
  6. RISUMIC [Concomitant]
     Indication: PROCEDURAL HYPOTENSION
     Route: 048
     Dates: start: 20110126, end: 20111228
  7. FOSRENOL [Concomitant]
     Indication: HYPERPHOSPHATAEMIA
     Route: 048
     Dates: start: 20110803, end: 20111127
  8. ARICEPT [Concomitant]
     Indication: DEMENTIA ALZHEIMER'S TYPE
     Route: 048
     Dates: start: 20081028, end: 20111208
  9. ADALAT CC [Concomitant]
     Indication: HYPERTENSION
     Route: 048
     Dates: start: 20100228, end: 20111127

REACTIONS (4)
  - GANGRENE [None]
  - BACTERAEMIA [None]
  - ARTERIAL OCCLUSIVE DISEASE [None]
  - LOCALISED INFECTION [None]
